FAERS Safety Report 7295225-4 (Version None)
Quarter: 2011Q1

REPORT INFORMATION
  Report Type: 
  Country: None (occurrence: None)
  Receive Date: 20110216
  Receipt Date: 20101222
  Transmission Date: 20110831
  Serious: No
  Sender: FDA-Public Use
  Company Number: A0901404A

PATIENT
  Age: 60 Year
  Sex: Male

DRUGS (4)
  1. TAMSULOSIN HCL [Concomitant]
  2. VOTRIENT [Suspect]
     Dosage: 200MG FOUR TIMES PER DAY
     Route: 048
     Dates: start: 20101101
  3. METOPROLOL [Concomitant]
  4. LISINOPRIL [Concomitant]

REACTIONS (2)
  - PAROSMIA [None]
  - NAUSEA [None]
